FAERS Safety Report 21364959 (Version 2)
Quarter: 2022Q4

REPORT INFORMATION
  Report Type: Spontaneous
  Country: US (occurrence: US)
  Receive Date: 20220922
  Receipt Date: 20221012
  Transmission Date: 20230113
  Serious: Yes (Hospitalization)
  Sender: FDA-Public Use
  Company Number: US-Blueprint Medicines Corporation-432

PATIENT
  Sex: Male

DRUGS (1)
  1. AYVAKIT [Suspect]
     Active Substance: AVAPRITINIB
     Indication: Gastrointestinal stromal tumour
     Route: 065
     Dates: start: 20210810

REACTIONS (6)
  - Hospitalisation [Unknown]
  - Paraesthesia [Unknown]
  - Motion sickness [Unknown]
  - Dizziness [Unknown]
  - Headache [Unknown]
  - Peripheral swelling [Recovering/Resolving]
